FAERS Safety Report 10187625 (Version 1)
Quarter: 2014Q2

REPORT INFORMATION
  Report Type: Spontaneous
  Country: US (occurrence: US)
  Receive Date: 20140522
  Receipt Date: 20140522
  Transmission Date: 20141212
  Serious: No
  Sender: FDA-Public Use
  Company Number: US-SANOFI-AVENTIS-2013SA076881

PATIENT
  Sex: Male

DRUGS (3)
  1. LANTUS [Suspect]
     Route: 051
  2. LEVEMIR [Concomitant]
     Route: 065
  3. NOVOLOG [Concomitant]
     Route: 065

REACTIONS (1)
  - Rash [Recovered/Resolved]
